FAERS Safety Report 25366248 (Version 1)
Quarter: 2025Q2

REPORT INFORMATION
  Report Type: Spontaneous
  Country: US (occurrence: US)
  Receive Date: 20250528
  Receipt Date: 20250528
  Transmission Date: 20250717
  Serious: Yes (Other)
  Sender: PHARMAXIS EUROPE LIMITED
  Company Number: US-Pharmaxis-001244

PATIENT
  Age: 31 Year
  Sex: Female
  Weight: 86 kg

DRUGS (12)
  1. PROPOFOL [Concomitant]
     Active Substance: PROPOFOL
     Indication: Product used for unknown indication
     Route: 042
  2. LIDOCAINE [Concomitant]
     Active Substance: LIDOCAINE
     Indication: Product used for unknown indication
     Route: 042
  3. FENTANYL [Concomitant]
     Active Substance: FENTANYL
     Indication: Product used for unknown indication
     Route: 042
  4. ROCURONIUM BROMIDE [Concomitant]
     Active Substance: ROCURONIUM BROMIDE
     Indication: Product used for unknown indication
     Route: 042
  5. DEXAMETHASONE [Concomitant]
     Active Substance: DEXAMETHASONE
     Indication: Product used for unknown indication
     Route: 065
  6. DEXAMETHASONE [Concomitant]
     Active Substance: DEXAMETHASONE
     Indication: Product used for unknown indication
     Route: 065
  7. CLINDAMYCIN [Concomitant]
     Active Substance: CLINDAMYCIN
     Indication: Product used for unknown indication
     Route: 065
  8. ISOFLURANE [Concomitant]
     Active Substance: ISOFLURANE
     Indication: Anaesthesia
     Route: 065
  9. SUFENTANIL [Concomitant]
     Active Substance: SUFENTANIL
     Indication: Anaesthesia
     Route: 042
  10. PHENYTOIN [Concomitant]
     Active Substance: PHENYTOIN
     Indication: Product used for unknown indication
     Route: 065
  11. MIDAZOLAM [Concomitant]
     Active Substance: MIDAZOLAM
     Indication: Premedication
     Route: 042
  12. MANNITOL [Suspect]
     Active Substance: MANNITOL
     Indication: Product used for unknown indication
     Route: 042

REACTIONS (3)
  - Hyperkalaemia [Recovered/Resolved]
  - Hyponatraemia [Recovered/Resolved]
  - Electrocardiogram T wave peaked [Recovered/Resolved]
